FAERS Safety Report 11293680 (Version 1)
Quarter: 2015Q3

REPORT INFORMATION
  Report Type: Spontaneous
  Country: US (occurrence: US)
  Receive Date: 20150722
  Receipt Date: 20150722
  Transmission Date: 20151125
  Serious: No
  Sender: FDA-Public Use
  Company Number: US-GLAXOSMITHKLINE-US2015100261

PATIENT
  Sex: Male

DRUGS (1)
  1. ALLI [Suspect]
     Active Substance: ORLISTAT
     Indication: WEIGHT LOSS DIET
     Dosage: UNK

REACTIONS (7)
  - Pain [Unknown]
  - Steatorrhoea [Unknown]
  - Treatment noncompliance [Unknown]
  - Muscle spasms [Unknown]
  - Flatulence [Unknown]
  - Gastrointestinal disorder [Unknown]
  - Discomfort [Unknown]
